FAERS Safety Report 20323088 (Version 3)
Quarter: 2022Q1

REPORT INFORMATION
  Report Type: Spontaneous
  Country: TR (occurrence: TR)
  Receive Date: 20220111
  Receipt Date: 20220214
  Transmission Date: 20220423
  Serious: Yes (Other)
  Sender: FDA-Public Use
  Company Number: TR-PFIZER INC-202200011111

PATIENT
  Age: 74 Year
  Sex: Female
  Weight: 73.5 kg

DRUGS (4)
  1. SERTRALINE HYDROCHLORIDE [Suspect]
     Active Substance: SERTRALINE HYDROCHLORIDE
     Indication: Major depression
     Dosage: 50 MG, 1X/DAY
  2. SERTRALINE HYDROCHLORIDE [Suspect]
     Active Substance: SERTRALINE HYDROCHLORIDE
     Dosage: 100 MG, DAILYONCE DURING THE MORNING
  3. SERTRALINE HYDROCHLORIDE [Suspect]
     Active Substance: SERTRALINE HYDROCHLORIDE
     Dosage: 37.5 MG, 1X/DAY
  4. MELATONIN [Suspect]
     Active Substance: MELATONIN
     Indication: Depression
     Dosage: 3 MG, 1X/DAY

REACTIONS (2)
  - Carcinoembryonic antigen increased [Recovered/Resolved]
  - Tumour marker increased [Recovered/Resolved]
